FAERS Safety Report 5640853-2 (Version None)
Quarter: 2008Q1

REPORT INFORMATION
  Report Type: 
  Country: None (occurrence: None)
  Receive Date: 20080225
  Receipt Date: 20080213
  Transmission Date: 20080703
  Serious: Yes (Hospitalization)
  Sender: FDA-Public Use
  Company Number: A0709990A

PATIENT
  Sex: Female

DRUGS (3)
  1. LAMICTAL [Suspect]
     Indication: BIPOLAR DISORDER
     Dosage: 200 MG / TWICE PER DAY / ORAL
     Route: 048
  2. COCAINE [Concomitant]
  3. ETHANOL [Concomitant]

REACTIONS (3)
  - CONVULSION [None]
  - OVERDOSE [None]
  - VOMITING [None]
